FAERS Safety Report 22224886 (Version 1)
Quarter: 2023Q2

REPORT INFORMATION
  Report Type: Report from Study
  Country: GB (occurrence: GB)
  Receive Date: 20230418
  Receipt Date: 20230418
  Transmission Date: 20230722
  Serious: Yes (Hospitalization)
  Sender: FDA-Public Use
  Company Number: GB-BAXTER-2023BAX018086

PATIENT
  Sex: Female

DRUGS (3)
  1. POTASSIUM CHLORIDE [Suspect]
     Active Substance: POTASSIUM CHLORIDE
     Dosage: VOLUME: 100 ML (VIAFLO BAG VOLUME 1000 ML)
     Route: 065
  2. MAGNESIUM SULFATE\SODIUM CHLORIDE [Suspect]
     Active Substance: MAGNESIUM SULFATE\SODIUM CHLORIDE
     Dosage: AT UNSPECIFIED DOSE AND FREQUENCY (SODIUM CHLORIDE 0.9% W/V MAGNESIUM SULPHATE HEPTAHYDRATE 0.2% W/V
     Route: 065
  3. UNSPECIFIED INGREDIENT [Suspect]
     Active Substance: UNSPECIFIED INGREDIENT
     Route: 065

REACTIONS (6)
  - Abdominal pain [Not Recovered/Not Resolved]
  - Condition aggravated [Not Recovered/Not Resolved]
  - Malaise [Not Recovered/Not Resolved]
  - Gastrointestinal stoma output abnormal [Not Recovered/Not Resolved]
  - Nausea [Not Recovered/Not Resolved]
  - Hypotension [Not Recovered/Not Resolved]
